FAERS Safety Report 4864672-X (Version None)
Quarter: 2005Q4

REPORT INFORMATION
  Report Type: 
  Country: None (occurrence: None)
  Receive Date: 20051222
  Receipt Date: 20051130
  Transmission Date: 20060501
  Serious: Yes (Death, Hospitalization)
  Sender: FDA-Public Use
  Company Number: US-MERCK-0512USA00061

PATIENT
  Age: 63 Year
  Sex: Female
  Weight: 136 kg

DRUGS (12)
  1. ZOCOR [Concomitant]
     Route: 065
  2. HUMULIN [Concomitant]
     Route: 065
  3. VIOXX [Suspect]
     Indication: ARTHRITIS
     Route: 048
     Dates: start: 20000501, end: 20021226
  4. ACTOS [Concomitant]
     Route: 065
  5. FAMOTIDINE [Concomitant]
     Route: 065
  6. GLYBURIDE [Concomitant]
     Route: 065
  7. HYDRALAZINE [Concomitant]
     Route: 065
  8. METFORMIN [Concomitant]
     Route: 065
  9. POTASSIUM CHLORIDE [Concomitant]
     Route: 065
  10. LASIX [Concomitant]
     Route: 065
  11. METOPROLOL [Concomitant]
     Route: 065
  12. PRINIVIL [Concomitant]
     Route: 065

REACTIONS (37)
  - ACUTE MYOCARDIAL INFARCTION [None]
  - APPETITE DISORDER [None]
  - ARTERIOSCLEROSIS [None]
  - ARTHRALGIA [None]
  - ASTHENIA [None]
  - BLOOD CHOLESTEROL INCREASED [None]
  - BRADYPHRENIA [None]
  - CATARACT [None]
  - CORONARY ARTERY DISEASE [None]
  - COUGH [None]
  - DIABETES MELLITUS [None]
  - DIABETIC RETINOPATHY [None]
  - DYSPEPSIA [None]
  - ESSENTIAL HYPERTENSION [None]
  - FLATULENCE [None]
  - GLYCOSYLATED HAEMOGLOBIN INCREASED [None]
  - HEADACHE [None]
  - HELICOBACTER PYLORI IDENTIFICATION TEST POSITIVE [None]
  - HYPERHIDROSIS [None]
  - HYPERTENSION [None]
  - HYPOAESTHESIA [None]
  - MICTURITION URGENCY [None]
  - MUSCLE SPASMS [None]
  - OEDEMA PERIPHERAL [None]
  - OPEN ANGLE GLAUCOMA [None]
  - OSTEOARTHRITIS [None]
  - PALPITATIONS [None]
  - PARAESTHESIA [None]
  - PLEURAL EFFUSION [None]
  - POLLAKIURIA [None]
  - PULMONARY CONGESTION [None]
  - PULMONARY EMBOLISM [None]
  - PULMONARY OEDEMA [None]
  - SINUS DISORDER [None]
  - VOMITING [None]
  - WEIGHT INCREASED [None]
  - WOUND [None]
